FAERS Safety Report 5913251-1 (Version None)
Quarter: 2008Q4

REPORT INFORMATION
  Report Type: 
  Country: None (occurrence: None)
  Receive Date: 20081008
  Receipt Date: 20081008
  Transmission Date: 20090506
  Serious: Yes (Other)
  Sender: FDA-Public Use
  Company Number: None

PATIENT
  Age: 40 Year
  Sex: Female
  Weight: 68.9467 kg

DRUGS (1)
  1. CHANTIX [Suspect]
     Indication: SMOKING CESSATION THERAPY
     Dosage: .5MG SID ORAL
     Route: 048
     Dates: start: 20080917, end: 20080922

REACTIONS (6)
  - ABNORMAL DREAMS [None]
  - AGITATION [None]
  - DISTURBANCE IN ATTENTION [None]
  - FORMICATION [None]
  - MEMORY IMPAIRMENT [None]
  - RASH [None]
